FAERS Safety Report 14371875 (Version 1)
Quarter: 2018Q1

REPORT INFORMATION
  Report Type: Report from Study
  Country: US (occurrence: US)
  Receive Date: 20180110
  Receipt Date: 20180110
  Transmission Date: 20180509
  Serious: Yes (Other)
  Sender: FDA-Public Use
  Company Number: US-AMGEN-USASL2018001639

PATIENT
  Age: 65 Year
  Sex: Female

DRUGS (1)
  1. REPATHA [Suspect]
     Active Substance: EVOLOCUMAB
     Indication: HYPERCHOLESTEROLAEMIA
     Dosage: 140 MG, Q2WK
     Route: 065
     Dates: start: 201709, end: 201711

REACTIONS (8)
  - Pollakiuria [Unknown]
  - Muscle spasms [Unknown]
  - Incontinence [Unknown]
  - Swelling face [Unknown]
  - Abdominal distension [Unknown]
  - Eye swelling [Unknown]
  - Rhinorrhoea [Unknown]
  - Swelling [Unknown]

NARRATIVE: CASE EVENT DATE: 2017
